FAERS Safety Report 15569442 (Version 1)
Quarter: 2018Q4

REPORT INFORMATION
  Report Type: Spontaneous
  Country: US (occurrence: US)
  Receive Date: 20181031
  Receipt Date: 20181031
  Transmission Date: 20190205
  Serious: No
  Sender: FDA-Public Use
  Company Number: US-BIOGEN-2018BI00652083

PATIENT
  Sex: Female

DRUGS (1)
  1. TECFIDERA [Suspect]
     Active Substance: DIMETHYL FUMARATE
     Indication: MULTIPLE SCLEROSIS
     Route: 065

REACTIONS (7)
  - Feeling of body temperature change [Unknown]
  - Ocular icterus [Unknown]
  - Malaise [Unknown]
  - Headache [Unknown]
  - Gait disturbance [Unknown]
  - Vomiting [Unknown]
  - Speech disorder [Unknown]
